FAERS Safety Report 8615565-3 (Version None)
Quarter: 2012Q3

REPORT INFORMATION
  Report Type: 
  Country: None (occurrence: None)
  Receive Date: 20120823
  Receipt Date: 20120821
  Transmission Date: 20120928
  Serious: Yes (Other)
  Sender: FDA-Public Use
  Company Number: PHHY2012BE070093

PATIENT
  Sex: Female

DRUGS (5)
  1. OMEPRAZOLE [Concomitant]
     Dosage: 40 MG, QD
  2. ACETAMINOPHEN [Concomitant]
     Indication: PAIN
     Dosage: 500 MG OR 1 G IN PAIN
  3. TRAZODONE HCL [Concomitant]
  4. GILENYA [Suspect]
     Indication: MULTIPLE SCLEROSIS
     Dosage: 0.5 MG, QD
     Route: 048
     Dates: start: 20120305, end: 20120816
  5. WELLBUTRIN [Concomitant]
     Dosage: 150 MG, QD

REACTIONS (11)
  - NECK PAIN [None]
  - STRESS [None]
  - DIZZINESS [None]
  - SALIVARY HYPERSECRETION [None]
  - ERUCTATION [None]
  - QUALITY OF LIFE DECREASED [None]
  - ABDOMINAL PAIN UPPER [None]
  - HEART RATE DECREASED [None]
  - MUSCULOSKELETAL PAIN [None]
  - CHEST DISCOMFORT [None]
  - CHEST PAIN [None]
